FAERS Safety Report 9882826 (Version 1)
Quarter: 2014Q1

REPORT INFORMATION
  Report Type: Spontaneous
  Country: US (occurrence: US)
  Receive Date: 20140207
  Receipt Date: 20140207
  Transmission Date: 20141002
  Serious: Yes (Hospitalization, Other)
  Sender: FDA-Public Use
  Company Number: US-ASTRAZENECA-2014SE07491

PATIENT
  Age: 89 Year
  Sex: Male

DRUGS (19)
  1. BUDESONIDE/FORMOTEROL [Suspect]
     Indication: CHRONIC OBSTRUCTIVE PULMONARY DISEASE
     Dosage: 160/4.5 MCG/ 2 PUFFS TWICE A DAY
     Route: 055
  2. BUDESONIDE/FORMOTEROL [Suspect]
     Indication: CHRONIC OBSTRUCTIVE PULMONARY DISEASE
     Dosage: RESTARTED DOSE
     Route: 055
  3. TIOTROPIUM [Suspect]
     Indication: CHRONIC OBSTRUCTIVE PULMONARY DISEASE
  4. AZITHROMYCIN [Suspect]
     Indication: PNEUMONIA
  5. MOXIFLOXACIN [Suspect]
     Indication: PNEUMONIA
  6. METOPROLOL TARTRATE [Concomitant]
     Indication: HYPERTENSION
  7. METOPROLOL TARTRATE [Concomitant]
     Indication: TACHYCARDIA
  8. METOPROLOL SUCCINATE [Concomitant]
     Indication: TACHYCARDIA
  9. ALBUTEROL [Concomitant]
     Indication: CHRONIC OBSTRUCTIVE PULMONARY DISEASE
     Dosage: EVERY 4 HOURS AS NEEDED
     Route: 055
  10. ALBUTEROL [Concomitant]
     Indication: CHRONIC OBSTRUCTIVE PULMONARY DISEASE
     Dosage: 90 MCG METERED DOSE INHALER 2 PUFFS EVERY 6 HOURS AS NEEDED
     Route: 055
  11. WARFARIN [Concomitant]
  12. FUROSEMIDE [Concomitant]
  13. FUROSEMIDE [Concomitant]
  14. FUROSEMIDE [Concomitant]
  15. SERTRALINE [Concomitant]
     Indication: DEPRESSION
  16. SERTRALINE [Concomitant]
     Indication: DEPRESSION
  17. CALCIUM CARBONATE/VITAMIN D [Concomitant]
     Dosage: 600 MG/400 IU 2 TIMES A DAY
  18. MELATONIN [Concomitant]
     Dosage: AT BED TIME, RARE USE
  19. ALBUTEROL/IPRATROPIUM [Concomitant]
     Indication: CHRONIC OBSTRUCTIVE PULMONARY DISEASE
     Dosage: 4 TIMES A DAY
     Route: 055

REACTIONS (3)
  - Confusional state [Recovered/Resolved]
  - Hallucination [Recovered/Resolved]
  - Delirium [Recovered/Resolved]
